FAERS Safety Report 25579615 (Version 1)
Quarter: 2025Q3

REPORT INFORMATION
  Report Type: Spontaneous
  Country: US (occurrence: US)
  Receive Date: 20250718
  Receipt Date: 20250718
  Transmission Date: 20251020
  Serious: Yes (Other)
  Sender: PURDUE
  Company Number: US-PURDUE-USA-2025-0319018

PATIENT
  Age: 58 Year
  Sex: Male

DRUGS (2)
  1. DEXTROAMPHETAMINE SACCHARATE, AMPHETAMINE ASPARTATE, DEXTROAMPHETAMINE [Suspect]
     Active Substance: AMPHETAMINE ASPARTATE\AMPHETAMINE SULFATE\DEXTROAMPHETAMINE SACCHARATE\DEXTROAMPHETAMINE SULFATE
     Indication: Product used for unknown indication
     Route: 048
  2. HYDROCODONE BITARTRATE [Suspect]
     Active Substance: HYDROCODONE BITARTRATE
     Indication: Product used for unknown indication
     Route: 065

REACTIONS (8)
  - Road traffic accident [Unknown]
  - Eyelid ptosis [Unknown]
  - Disturbance in attention [Unknown]
  - Hyporeflexia [Unknown]
  - Homicide [Unknown]
  - Drug screen positive [Unknown]
  - Dysarthria [Unknown]
  - Miosis [Unknown]

NARRATIVE: CASE EVENT DATE: 20200401
